FAERS Safety Report 20179168 (Version 2)
Quarter: 2022Q3

REPORT INFORMATION
  Report Type: Spontaneous
  Country: US (occurrence: US)
  Receive Date: 20211214
  Receipt Date: 20220701
  Transmission Date: 20221027
  Serious: No
  Sender: FDA-Public Use
  Company Number: US-LUPIN PHARMACEUTICALS INC.-2021-24132

PATIENT
  Sex: Female

DRUGS (2)
  1. ALBUTEROL SULFATE [Suspect]
     Active Substance: ALBUTEROL SULFATE
     Indication: Asthma
     Dosage: UNK (AS NEEDED)
     Dates: start: 20211017
  2. ALBUTEROL SULFATE [Suspect]
     Active Substance: ALBUTEROL SULFATE
     Indication: Bronchitis
     Dosage: UNK (AS NEEDED)
     Dates: start: 20211124

REACTIONS (3)
  - Wrong technique in product usage process [Unknown]
  - Circumstance or information capable of leading to medication error [Unknown]
  - No adverse event [Unknown]
